FAERS Safety Report 25852963 (Version 1)
Quarter: 2025Q3

REPORT INFORMATION
  Report Type: Spontaneous
  Country: JP (occurrence: JP)
  Receive Date: 20250926
  Receipt Date: 20250926
  Transmission Date: 20251021
  Serious: Yes (Other)
  Sender: BAYER HEALTHCARE PHARMACEUTICALS INC.
  Company Number: JP-BAYER-2025A120301

PATIENT
  Sex: Male

DRUGS (3)
  1. NUBEQA [Suspect]
     Active Substance: DAROLUTAMIDE
     Indication: Prostate cancer
  2. DOCETAXEL [Concomitant]
     Active Substance: DOCETAXEL
  3. LEUPLIN [Concomitant]
     Active Substance: LEUPROLIDE ACETATE

REACTIONS (2)
  - Disease progression [Unknown]
  - Metastasis [None]

NARRATIVE: CASE EVENT DATE: 20250101
